FAERS Safety Report 8114952-X (Version None)
Quarter: 2012Q1

REPORT INFORMATION
  Report Type: 
  Country: None (occurrence: None)
  Receive Date: 20120206
  Receipt Date: 20120202
  Transmission Date: 20120608
  Serious: Yes (Life-Threatening, Hospitalization)
  Sender: FDA-Public Use
  Company Number: DE-B.I. PHARMACEUTICALS,INC./RIDGEFIELD-2012-DE-00247DE

PATIENT
  Sex: Male
  Weight: 89 kg

DRUGS (17)
  1. DOXAZOSIN 4 [Concomitant]
     Indication: HYPERTENSION
     Dosage: 4 MG
  2. PANTOPRAZOL 40 [Concomitant]
     Dosage: ONCE DAILY IF REQUIRED
  3. ASPIRIN [Concomitant]
     Dosage: 1 ANZ
  4. KALIUM BT [Concomitant]
     Dosage: 1 ANZ
  5. PRADAXA [Suspect]
     Dosage: 220 MG
     Dates: start: 20111208, end: 20120117
  6. XIPAMID 20MG [Concomitant]
     Dosage: 3 ANZ
  7. SIMVA 40 [Concomitant]
     Indication: CORONARY ARTERY DISEASE
     Dosage: 1 ANZ
  8. METOPROLOL SUCC 95 [Concomitant]
     Indication: HYPERTENSION
     Dosage: 95 MG
  9. METOPROLOL SUCC 95 [Concomitant]
     Indication: CORONARY ARTERY DISEASE
  10. FERROSANOL GTT [Concomitant]
     Dosage: 30 ANZ
  11. INSUMAN RAPID [Concomitant]
     Dosage: FOR VALUE
  12. RAMIPRIL 5 [Concomitant]
     Indication: HYPERTENSION
     Dosage: 1 ANZ
  13. AMLODIPIN 5 [Concomitant]
     Indication: HYPERTENSION
     Dosage: 5 MG
  14. SIMVA 40 [Concomitant]
     Indication: HYPERCHOLESTEROLAEMIA
  15. GLYBURIDE [Concomitant]
     Dosage: 1.5 ANZ
  16. PRADAXA [Suspect]
     Indication: ATRIAL FIBRILLATION
     Dosage: 300 MG
     Dates: start: 20111024, end: 20111207
  17. INSUMAN BASAL [Concomitant]

REACTIONS (8)
  - HAEMATOMA [None]
  - HAEMORRHAGIC DIATHESIS [None]
  - EPISTAXIS [None]
  - MELAENA [None]
  - GASTROINTESTINAL HAEMORRHAGE [None]
  - ANAEMIA [None]
  - RENAL FAILURE [None]
  - CONJUNCTIVAL HAEMORRHAGE [None]
